FAERS Safety Report 5515228-7 (Version None)
Quarter: 2007Q4

REPORT INFORMATION
  Report Type: 
  Country: None (occurrence: None)
  Receive Date: 20071109
  Receipt Date: 20071104
  Transmission Date: 20080405
  Serious: Yes (Other)
  Sender: FDA-Public Use
  Company Number: CHPA2007US11692

PATIENT
  Age: 41 Year
  Sex: Male

DRUGS (1)
  1. THERAFLU DAYTIME SEVERE COLD WARMING SYRUP (NCH)(PARACETAMOL, DEXTROME [Suspect]
     Indication: NASOPHARYNGITIS
     Dosage: ORAL
     Route: 048

REACTIONS (1)
  - PANCREATITIS [None]
